FAERS Safety Report 14376326 (Version 1)
Quarter: 2018Q1

REPORT INFORMATION
  Report Type: Spontaneous
  Country: US (occurrence: US)
  Receive Date: 20180111
  Receipt Date: 20180111
  Transmission Date: 20180509
  Serious: No
  Sender: FDA-Public Use
  Company Number: US-LANTHEUS-LMI-2017-00324

PATIENT
  Age: 69 Year
  Sex: Female
  Weight: 69 kg

DRUGS (3)
  1. LEXISCAN [Suspect]
     Active Substance: REGADENOSON
     Indication: CARDIAC STRESS TEST
     Dosage: 0.4 MG, UNK
     Route: 065
     Dates: start: 20170515, end: 20170515
  2. CARDIOLITE [Suspect]
     Active Substance: TECHNETIUM TC-99M SESTAMIBI
     Indication: CARDIAC STRESS TEST
     Dosage: 11 MCI, UNK
     Route: 065
     Dates: start: 20170515, end: 20170515
  3. CARDIOLITE [Suspect]
     Active Substance: TECHNETIUM TC-99M SESTAMIBI
     Dosage: 330 MCI, UNK
     Route: 065
     Dates: start: 20170515, end: 20170515

REACTIONS (5)
  - Pain [Recovered/Resolved]
  - Pruritus generalised [Recovered/Resolved]
  - Erythema [Recovered/Resolved]
  - Drug hypersensitivity [Recovered/Resolved]
  - Rash [Recovered/Resolved]

NARRATIVE: CASE EVENT DATE: 20170515
